FAERS Safety Report 6966229-3 (Version None)
Quarter: 2010Q3

REPORT INFORMATION
  Report Type: 
  Country: None (occurrence: None)
  Receive Date: 20100903
  Receipt Date: 20100824
  Transmission Date: 20110219
  Serious: Yes (Hospitalization, Other)
  Sender: FDA-Public Use
  Company Number: US-ELI_LILLY_AND_COMPANY-US201008007488

PATIENT
  Sex: Male

DRUGS (5)
  1. CYMBALTA [Suspect]
     Indication: DIABETIC NEUROPATHY
     Dosage: 60 MG, DAILY (1/D)
     Dates: end: 20100801
  2. TOPROL-XL [Concomitant]
     Dosage: UNK, UNKNOWN
  3. COUMADIN [Concomitant]
  4. MORPHINE [Concomitant]
  5. FENTANYL CITRATE [Concomitant]

REACTIONS (7)
  - CARDIAC FAILURE CONGESTIVE [None]
  - CONSTIPATION [None]
  - DRUG LEVEL FLUCTUATING [None]
  - DYSPNOEA [None]
  - INCONTINENCE [None]
  - INTESTINAL RESECTION [None]
  - MALABSORPTION [None]
